FAERS Safety Report 4504680-1 (Version None)
Quarter: 2004Q3

REPORT INFORMATION
  Report Type: 
  Country: None (occurrence: None)
  Receive Date: 20040927
  Receipt Date: 20040709
  Transmission Date: 20050211
  Serious: No
  Sender: FDA-Public Use
  Company Number: USA040772301

PATIENT
  Age: 12 Year
  Sex: Male

DRUGS (2)
  1. STRATTERA [Suspect]
     Dosage: 18 MG/1 DAY
  2. CONCERTA [Concomitant]

REACTIONS (2)
  - SKIN INJURY [None]
  - TIC [None]
